FAERS Safety Report 25264942 (Version 2)
Quarter: 2025Q3

REPORT INFORMATION
  Report Type: Spontaneous
  Country: CN (occurrence: CN)
  Receive Date: 20250502
  Receipt Date: 20250809
  Transmission Date: 20251021
  Serious: Yes (Death, Other)
  Sender: ALEXION PHARMACEUTICALS
  Company Number: CN-ASTRAZENECA-202504GLO026239CN

PATIENT
  Age: 33 Year
  Sex: Female

DRUGS (2)
  1. OSIMERTINIB [Suspect]
     Active Substance: OSIMERTINIB
     Indication: Non-small cell lung cancer
     Route: 065
  2. BEVACIZUMAB [Concomitant]
     Active Substance: BEVACIZUMAB
     Indication: Lung adenocarcinoma

REACTIONS (6)
  - Malignant neoplasm progression [Fatal]
  - Malignant transformation [Fatal]
  - Metastases to pleura [Fatal]
  - Metastases to heart [Fatal]
  - Metastases to central nervous system [Fatal]
  - Small cell lung cancer [Fatal]
